FAERS Safety Report 9558342 (Version 5)
Quarter: 2014Q1

REPORT INFORMATION
  Report Type: Spontaneous
  Country: US (occurrence: US)
  Receive Date: 20130926
  Receipt Date: 20140228
  Transmission Date: 20141002
  Serious: Yes (Other)
  Sender: FDA-Public Use
  Company Number: CHPA2013US014555

PATIENT
  Age: 69 Year
  Sex: Female

DRUGS (1)
  1. TRANSDERM SCOP [Suspect]
     Indication: MOTION SICKNESS
     Dosage: 1 DF, EVERY COUPLE OF DAYS
     Route: 062
     Dates: start: 201201, end: 201202

REACTIONS (10)
  - Cognitive disorder [Not Recovered/Not Resolved]
  - Fatigue [Recovering/Resolving]
  - Disorientation [Not Recovered/Not Resolved]
  - Memory impairment [Not Recovered/Not Resolved]
  - Motion sickness [Not Recovered/Not Resolved]
  - Condition aggravated [Not Recovered/Not Resolved]
  - Eructation [Not Recovered/Not Resolved]
  - Asthenia [Not Recovered/Not Resolved]
  - Feeling abnormal [Not Recovered/Not Resolved]
  - Nausea [Not Recovered/Not Resolved]
